FAERS Safety Report 25682350 (Version 1)
Quarter: 2025Q3

REPORT INFORMATION
  Report Type: Spontaneous
  Country: EU (occurrence: EU)
  Receive Date: 20250814
  Receipt Date: 20250814
  Transmission Date: 20251021
  Serious: Yes (Death, Hospitalization)
  Sender: MYLAN
  Company Number: None

PATIENT
  Age: 75 Year
  Sex: Male
  Weight: 100 kg

DRUGS (12)
  1. GEMCITABINE [Suspect]
     Active Substance: GEMCITABINE
     Indication: B-cell lymphoma
  2. GEMCITABINE [Suspect]
     Active Substance: GEMCITABINE
     Route: 042
  3. GEMCITABINE [Suspect]
     Active Substance: GEMCITABINE
     Route: 042
  4. GEMCITABINE [Suspect]
     Active Substance: GEMCITABINE
  5. OXALIPLATIN [Suspect]
     Active Substance: OXALIPLATIN
     Indication: B-cell lymphoma
  6. OXALIPLATIN [Suspect]
     Active Substance: OXALIPLATIN
     Route: 042
  7. OXALIPLATIN [Suspect]
     Active Substance: OXALIPLATIN
     Route: 042
  8. OXALIPLATIN [Suspect]
     Active Substance: OXALIPLATIN
  9. COLUMVI [Suspect]
     Active Substance: GLOFITAMAB-GXBM
     Indication: B-cell lymphoma
     Dosage: 30 MILLIGRAM, Q21D
     Dates: start: 20250522, end: 20250719
  10. COLUMVI [Suspect]
     Active Substance: GLOFITAMAB-GXBM
     Dosage: 30 MILLIGRAM, Q21D
     Route: 042
     Dates: start: 20250522, end: 20250719
  11. COLUMVI [Suspect]
     Active Substance: GLOFITAMAB-GXBM
     Dosage: 30 MILLIGRAM, Q21D
     Route: 042
     Dates: start: 20250522, end: 20250719
  12. COLUMVI [Suspect]
     Active Substance: GLOFITAMAB-GXBM
     Dosage: 30 MILLIGRAM, Q21D
     Dates: start: 20250522, end: 20250719

REACTIONS (2)
  - Immune effector cell-associated neurotoxicity syndrome [Fatal]
  - Infection [Not Recovered/Not Resolved]

NARRATIVE: CASE EVENT DATE: 20250101
